FAERS Safety Report 23530232 (Version 2)
Quarter: 2024Q1

REPORT INFORMATION
  Report Type: Spontaneous
  Country: JP (occurrence: JP)
  Receive Date: 20240216
  Receipt Date: 20240302
  Transmission Date: 20240410
  Serious: Yes (Hospitalization, Other)
  Sender: FDA-Public Use
  Company Number: JP-Accord-406769

PATIENT
  Age: 59 Year
  Sex: Female

DRUGS (6)
  1. OXALIPLATIN [Suspect]
     Active Substance: OXALIPLATIN
     Indication: Gastric cancer
  2. NIVOLUMAB [Suspect]
     Active Substance: NIVOLUMAB
     Indication: Gastric cancer
  3. OXALIPLATIN [Suspect]
     Active Substance: OXALIPLATIN
     Indication: Human epidermal growth factor receptor negative
  4. NIVOLUMAB [Suspect]
     Active Substance: NIVOLUMAB
     Indication: Human epidermal growth factor receptor negative
  5. NIVOLUMAB [Suspect]
     Active Substance: NIVOLUMAB
     Indication: Metastases to peritoneum
  6. OXALIPLATIN [Suspect]
     Active Substance: OXALIPLATIN
     Indication: Metastases to peritoneum

REACTIONS (13)
  - Cystitis haemorrhagic [Recovered/Resolved]
  - Arthralgia [Recovered/Resolved]
  - Pyrexia [Unknown]
  - Decreased appetite [Recovered/Resolved]
  - Diarrhoea [Recovered/Resolved]
  - Erythema [Unknown]
  - Lymphocytic infiltration [Unknown]
  - Adverse event [Unknown]
  - Neck pain [Unknown]
  - Fat tissue increased [Unknown]
  - Pyuria [Unknown]
  - Haematuria [Unknown]
  - Pollakiuria [Unknown]
